FAERS Safety Report 7535993-7 (Version None)
Quarter: 2011Q2

REPORT INFORMATION
  Report Type: 
  Country: None (occurrence: None)
  Receive Date: 20110607
  Receipt Date: 20110607
  Transmission Date: 20111010
  Serious: No
  Sender: FDA-Public Use
  Company Number: None

PATIENT
  Sex: Male
  Weight: 96.6162 kg

DRUGS (3)
  1. CHOLESTYRAMINE [Suspect]
     Indication: HYPERLIPIDAEMIA
     Dosage: 2 SCOOPS MIXED W/ H20 QD ORAL
     Route: 048
     Dates: start: 20031231
  2. CHOLESTYRAMINE [Suspect]
     Indication: HYPERLIPIDAEMIA
     Dosage: 2 SCOOPS MIXED W/ H20 QD ORAL
     Route: 048
     Dates: start: 20060401
  3. CHOLESTYRAMINE [Suspect]
     Indication: HYPERLIPIDAEMIA
     Dosage: 2 SCOOPS MIXED W/ H20 QD ORAL
     Route: 048
     Dates: start: 20100711

REACTIONS (1)
  - DIARRHOEA [None]
